FAERS Safety Report 14386604 (Version 1)
Quarter: 2018Q1

REPORT INFORMATION
  Report Type: Spontaneous
  Country: US (occurrence: US)
  Receive Date: 20180115
  Receipt Date: 20180115
  Transmission Date: 20180509
  Serious: Yes (Other)
  Sender: FDA-Public Use
  Company Number: US-SA-2017SA151571

PATIENT
  Age: 38 Year
  Sex: Female
  Weight: 79 kg

DRUGS (8)
  1. EPIRUBICIN [Concomitant]
     Active Substance: EPIRUBICIN
  2. PACLITAXEL. [Concomitant]
     Active Substance: PACLITAXEL
  3. CYCLOPHOSPHAMIDE. [Concomitant]
     Active Substance: CYCLOPHOSPHAMIDE
  4. IFOSFAMIDE. [Concomitant]
     Active Substance: IFOSFAMIDE
  5. SYNTHROID [Concomitant]
     Active Substance: LEVOTHYROXINE SODIUM
     Route: 065
     Dates: start: 2000, end: 2007
  6. TAXOTERE [Suspect]
     Active Substance: DOCETAXEL
     Indication: BREAST CANCER
     Route: 051
     Dates: start: 20070928, end: 20070928
  7. TAXOTERE [Suspect]
     Active Substance: DOCETAXEL
     Indication: BREAST CANCER
     Route: 051
     Dates: start: 20070918, end: 20070918
  8. LEVOXYL [Concomitant]
     Active Substance: LEVOTHYROXINE SODIUM
     Route: 065
     Dates: start: 2000, end: 2007

REACTIONS (2)
  - Alopecia [Not Recovered/Not Resolved]
  - Psychological trauma [Unknown]

NARRATIVE: CASE EVENT DATE: 2007
